FAERS Safety Report 6152813-6 (Version None)
Quarter: 2009Q2

REPORT INFORMATION
  Report Type: 
  Country: None (occurrence: None)
  Receive Date: 20090413
  Receipt Date: 20090402
  Transmission Date: 20091009
  Serious: Yes (Other)
  Sender: FDA-Public Use
  Company Number: CA-PFIZER INC-2009192588

PATIENT

DRUGS (1)
  1. CHAMPIX [Suspect]
     Dosage: UNK
     Dates: start: 20081105, end: 20090101

REACTIONS (4)
  - DEPRESSION [None]
  - DIZZINESS [None]
  - DYSPEPSIA [None]
  - WRIST FRACTURE [None]
